FAERS Safety Report 6163438-0 (Version None)
Quarter: 2009Q2

REPORT INFORMATION
  Report Type: 
  Country: None (occurrence: None)
  Receive Date: 20090420
  Receipt Date: 20090420
  Transmission Date: 20091009
  Serious: No
  Sender: FDA-Public Use
  Company Number: None

PATIENT
  Age: 54 Year
  Sex: Female
  Weight: 98.9 kg

DRUGS (12)
  1. VARENICLINE [Suspect]
     Indication: SMOKING CESSATION THERAPY
     Dosage: 1 MG BID PO
     Route: 048
     Dates: start: 20071031, end: 20080207
  2. CALCIUM CARB [Concomitant]
  3. FLUNISOLIDE NASAL SOLN [Concomitant]
  4. FREESTYLE BLOOD GLUCOSE TEST STRIP [Concomitant]
  5. GLIPIZIDE [Concomitant]
  6. HYDROCHLOROTHIAZIDE [Concomitant]
  7. METFORMIN HCL [Concomitant]
  8. NAPROXEN [Concomitant]
  9. NICOTINE [Concomitant]
  10. RANITIDINE [Concomitant]
  11. SIMVASTATIN [Concomitant]
  12. SODIUM CHLORIDE [Concomitant]

REACTIONS (2)
  - ABDOMINAL PAIN [None]
  - GASTROINTESTINAL PAIN [None]
